FAERS Safety Report 5557065-3 (Version None)
Quarter: 2007Q4

REPORT INFORMATION
  Report Type: 
  Country: None (occurrence: None)
  Receive Date: 20071211
  Receipt Date: 20071204
  Transmission Date: 20080405
  Serious: Yes (Hospitalization)
  Sender: FDA-Public Use
  Company Number: SP01688

PATIENT
  Age: 73 Year
  Sex: Male

DRUGS (8)
  1. COLAZAL [Suspect]
     Indication: COLITIS ULCERATIVE
     Dosage: 6.75 GM (2.25 GM, 3 IN 1 D), ORAL
     Route: 048
     Dates: start: 20051001, end: 20071109
  2. PREDNISOLONE [Concomitant]
  3. LORAZEPAM [Concomitant]
  4. LANSOPRAZOLE [Concomitant]
  5. ALFACALCIDOL [Concomitant]
  6. CARBIMAZOLE [Concomitant]
  7. NITRAZEPAM [Concomitant]
  8. SIMVASTATIN [Concomitant]

REACTIONS (4)
  - CHILLS [None]
  - PYREXIA [None]
  - RASH [None]
  - WHITE BLOOD CELL COUNT INCREASED [None]
